FAERS Safety Report 16869314 (Version 4)
Quarter: 2019Q4

REPORT INFORMATION
  Report Type: Spontaneous
  Country: HU (occurrence: HU)
  Receive Date: 20190930
  Receipt Date: 20191213
  Transmission Date: 20200122
  Serious: Yes (Hospitalization, Other)
  Sender: FDA-Public Use
  Company Number: HU-MYLANLABS-2019M1089979

PATIENT
  Age: 55 Year
  Sex: Male

DRUGS (5)
  1. IBUPROFEN. [Interacting]
     Active Substance: IBUPROFEN
     Indication: CARDIOVASCULAR DISORDER
  2. ACETYLSALICYLIC ACID [Interacting]
     Active Substance: ASPIRIN
     Indication: CARDIOVASCULAR DISORDER
     Dosage: UNK
     Route: 065
  3. IBUPROFEN. [Interacting]
     Active Substance: IBUPROFEN
     Indication: POSTOPERATIVE ANALGESIA
  4. WARFARIN [Suspect]
     Active Substance: WARFARIN
     Indication: CARDIOVASCULAR DISORDER
     Dosage: UNK
     Route: 065
  5. IBUPROFEN. [Interacting]
     Active Substance: IBUPROFEN
     Indication: PROCEDURAL PAIN
     Dosage: UNK
     Route: 065

REACTIONS (7)
  - Gastric ulcer haemorrhage [Recovering/Resolving]
  - Drug interaction [Unknown]
  - Gastric ulcer [Recovering/Resolving]
  - Melaena [Unknown]
  - Anaemia [Unknown]
  - Gastritis erosive [Unknown]
  - Peptic ulcer [Unknown]
